FAERS Safety Report 18137999 (Version 2)
Quarter: 2021Q3

REPORT INFORMATION
  Report Type: Report from Study
  Country: CA (occurrence: CA)
  Receive Date: 20200812
  Receipt Date: 20210810
  Transmission Date: 20211014
  Serious: Yes (Hospitalization, Other)
  Sender: FDA-Public Use
  Company Number: CA-ACCORD-195194

PATIENT
  Age: 54 Year
  Sex: Female

DRUGS (6)
  1. ERENUMAB [Suspect]
     Active Substance: ERENUMAB
     Indication: MIGRAINE
  2. AIMOVIG [Suspect]
     Active Substance: ERENUMAB-AOOE
     Indication: MIGRAINE
     Dosage: PREFILLED AUTO?INJECTOR,SOLUTION SUBCUTANEOUS
     Route: 065
  3. AIMOVIG [Suspect]
     Active Substance: ERENUMAB-AOOE
     Indication: MIGRAINE
     Dosage: PREFILLED AUTO?INJECTOR
     Route: 065
  4. TOPIRAMATE. [Suspect]
     Active Substance: TOPIRAMATE
     Indication: MIGRAINE
     Dosage: NOT SPECIFIED
     Route: 065
  5. PROPRANOLOL [Suspect]
     Active Substance: PROPRANOLOL HYDROCHLORIDE
     Indication: MIGRAINE
     Dosage: NOT SPECIFIED
     Route: 065
  6. ERENUMAB [Suspect]
     Active Substance: ERENUMAB
     Indication: MIGRAINE

REACTIONS (14)
  - Facet joint syndrome [Unknown]
  - Nodule [Unknown]
  - Troponin increased [Unknown]
  - Vertebral foraminal stenosis [Unknown]
  - Chest pain [Unknown]
  - Carcinoid tumour pulmonary [Unknown]
  - Drug ineffective [Unknown]
  - Migraine [Unknown]
  - Dyspnoea [Unknown]
  - Condition aggravated [Unknown]
  - Cardiac disorder [Unknown]
  - Scar [Unknown]
  - Breast cyst [Unknown]
  - Vertebral osteophyte [Unknown]
